FAERS Safety Report 5224918-5 (Version None)
Quarter: 2007Q1

REPORT INFORMATION
  Report Type: 
  Country: None (occurrence: None)
  Receive Date: 20070126
  Receipt Date: 20070111
  Transmission Date: 20070707
  Serious: Yes (Hospitalization)
  Sender: FDA-Public Use
  Company Number: GXKR2007NO00709

PATIENT
  Age: 81 Year
  Sex: Female

DRUGS (5)
  1. METFORMIN HCL [Suspect]
     Indication: DIABETES MELLITUS NON-INSULIN-DEPENDENT
     Dosage: 3 G
  2. LISINOPRIL [Suspect]
     Indication: HYPERTENSION
     Dosage: 20 MG
  3. GLIMEPIRIDE [Concomitant]
  4. HYDROCHLOROTHIAZIDE [Concomitant]
  5. CALCIUM CHANNEL BLOCKERS (NO INGREDIENTS/SUBSTANCES) [Concomitant]

REACTIONS (14)
  - ABDOMINAL PAIN [None]
  - BLOOD PRESSURE DECREASED [None]
  - DEHYDRATION [None]
  - DIARRHOEA [None]
  - DRUG LEVEL INCREASED [None]
  - HAEMATEMESIS [None]
  - HAEMODIALYSIS [None]
  - HYPOTHERMIA [None]
  - HYPOVENTILATION [None]
  - LACTIC ACIDOSIS [None]
  - MALAISE [None]
  - RECTAL HAEMORRHAGE [None]
  - RENAL FAILURE [None]
  - VOMITING [None]
